FAERS Safety Report 15386698 (Version 1)
Quarter: 2018Q3

REPORT INFORMATION
  Report Type: Spontaneous
  Country: TH (occurrence: TH)
  Receive Date: 20180914
  Receipt Date: 20180914
  Transmission Date: 20181010
  Serious: Yes (Death, Other)
  Sender: FDA-Public Use
  Company Number: TH-AMGEN-THASP2018128058

PATIENT
  Age: 62 Year
  Sex: Female

DRUGS (4)
  1. BLINCYTO [Suspect]
     Active Substance: BLINATUMOMAB
     Dosage: 28 MUG, QD (DAYS 8?28)
     Route: 065
     Dates: start: 2017
  2. BLINCYTO [Suspect]
     Active Substance: BLINATUMOMAB
     Indication: ACUTE LYMPHOCYTIC LEUKAEMIA RECURRENT
     Dosage: 9 MUG, QD (DAYS 1?7)
     Route: 065
     Dates: start: 2017
  3. BLINCYTO [Suspect]
     Active Substance: BLINATUMOMAB
     Dosage: 28 MUG, QD
     Route: 065
     Dates: start: 201710
  4. BLINCYTO [Suspect]
     Active Substance: BLINATUMOMAB
     Dosage: UNK
     Route: 065
     Dates: start: 201712

REACTIONS (3)
  - Sepsis [Unknown]
  - Febrile neutropenia [Unknown]
  - Death [Fatal]

NARRATIVE: CASE EVENT DATE: 2017
